FAERS Safety Report 9516269 (Version 1)
Quarter: 2013Q3

REPORT INFORMATION
  Report Type: Spontaneous
  Country: GB (occurrence: GB)
  Receive Date: 20130911
  Receipt Date: 20130911
  Transmission Date: 20140515
  Serious: Yes (Hospitalization)
  Sender: FDA-Public Use
  Company Number: GB-ROCHE-1273125

PATIENT
  Age: 63 Year
  Sex: Male

DRUGS (1)
  1. NAPROXEN [Suspect]
     Indication: SCIATICA
     Dosage: SINCE 2 MONTHS
     Route: 065

REACTIONS (1)
  - Drug reaction with eosinophilia and systemic symptoms [Recovered/Resolved]
